FAERS Safety Report 25046502 (Version 1)
Quarter: 2025Q1

REPORT INFORMATION
  Report Type: Report from Study
  Country: US (occurrence: US)
  Receive Date: 20250306
  Receipt Date: 20250306
  Transmission Date: 20250409
  Serious: Yes (Other)
  Sender: UPSHER SMITH LABORATORIES
  Company Number: US-UPSHER-SMITH LABORATORIES, LLC-20250200630

PATIENT
  Sex: Male
  Weight: 92.971 kg

DRUGS (5)
  1. ISOTRETINOIN [Suspect]
     Active Substance: ISOTRETINOIN
     Indication: Acne
     Route: 048
     Dates: start: 20250121, end: 20250224
  2. ISOTRETINOIN [Concomitant]
     Active Substance: ISOTRETINOIN
     Indication: Product used for unknown indication
     Route: 048
     Dates: start: 20241119, end: 20241217
  3. ISOTRETINOIN [Concomitant]
     Active Substance: ISOTRETINOIN
     Route: 048
     Dates: start: 20241217, end: 20250121
  4. COCAINE [Concomitant]
     Active Substance: COCAINE
     Indication: Substance use
     Route: 065
  5. KETAMINE [Concomitant]
     Active Substance: KETAMINE
     Indication: Substance use
     Route: 065

REACTIONS (1)
  - Depression [Unknown]

NARRATIVE: CASE EVENT DATE: 20250101
